FAERS Safety Report 18241554 (Version 1)
Quarter: 2020Q3

REPORT INFORMATION
  Report Type: Spontaneous
  Country: US (occurrence: US)
  Receive Date: 20200908
  Receipt Date: 20200908
  Transmission Date: 20201103
  Serious: Yes (Hospitalization, Other)
  Sender: FDA-Public Use
  Company Number: US-GLENMARK PHARMACEUTICALS-2020GMK048587

PATIENT

DRUGS (4)
  1. NAPROXEN TABLETS USP [Suspect]
     Active Substance: NAPROXEN
     Indication: BACK PAIN
     Dosage: 500 MILLIGRAM, BID (1 TABLET EVERY 12 HOURS)
     Route: 048
     Dates: start: 201911, end: 2019
  2. PRILOSEC [Concomitant]
     Active Substance: OMEPRAZOLE MAGNESIUM
     Indication: HERNIA
     Dosage: 1 DOSAGE FORM, QOD
     Route: 065
  3. PREMARIN [Concomitant]
     Active Substance: ESTROGENS, CONJUGATED
     Indication: HORMONE LEVEL ABNORMAL
     Dosage: THREE TIMES A WEEK
     Route: 065
  4. NAPROXEN TABLETS USP [Suspect]
     Active Substance: NAPROXEN
     Indication: PAIN IN EXTREMITY

REACTIONS (1)
  - Rectal haemorrhage [Recovered/Resolved]

NARRATIVE: CASE EVENT DATE: 20191126
